FAERS Safety Report 7814638-2 (Version None)
Quarter: 2011Q4

REPORT INFORMATION
  Report Type: 
  Country: None (occurrence: None)
  Receive Date: 20111014
  Receipt Date: 20110930
  Transmission Date: 20120403
  Serious: Yes (Life-Threatening, Hospitalization)
  Sender: FDA-Public Use
  Company Number: US-BAYER-2011-030916

PATIENT
  Age: 35 Year
  Sex: Female
  Weight: 79.819 kg

DRUGS (5)
  1. DROSPIRENONE AND ETHINYL ESTRADIOL [Suspect]
     Dosage: UNK
     Dates: start: 20060101, end: 20090901
  2. IBUPROFEN [Concomitant]
     Dosage: 600 MG, PRN
     Route: 048
  3. IBUPROFEN [Concomitant]
  4. +#8220;NATURAL SUPPLEMENTS+#8221; [Concomitant]
  5. YAZ [Suspect]
     Dosage: UNK
     Dates: start: 20060101, end: 20090901

REACTIONS (7)
  - DEEP VEIN THROMBOSIS [None]
  - ANXIETY [None]
  - ANHEDONIA [None]
  - THROMBOSIS [None]
  - PAIN [None]
  - INJURY [None]
  - GENERAL PHYSICAL HEALTH DETERIORATION [None]
